FAERS Safety Report 16245121 (Version 1)
Quarter: 2019Q2

REPORT INFORMATION
  Report Type: Spontaneous
  Country: IT (occurrence: IT)
  Receive Date: 20190426
  Receipt Date: 20190426
  Transmission Date: 20190711
  Serious: Yes (Hospitalization)
  Sender: FDA-Public Use
  Company Number: IT-PFIZER INC-2019178197

PATIENT
  Age: 6 Year
  Sex: Female
  Weight: 28 kg

DRUGS (1)
  1. AZITHROMYCIN ANHYDROUS. [Suspect]
     Active Substance: AZITHROMYCIN ANHYDROUS
     Indication: PHARYNGOTONSILLITIS
     Dosage: 300 MG, 1X/DAY
     Route: 048
     Dates: start: 20190304, end: 20190308

REACTIONS (3)
  - Petechiae [Recovering/Resolving]
  - Arthralgia [Recovering/Resolving]
  - Ecchymosis [Recovering/Resolving]

NARRATIVE: CASE EVENT DATE: 20190307
